FAERS Safety Report 5261188-6 (Version None)
Quarter: 2007Q1

REPORT INFORMATION
  Report Type: 
  Country: None (occurrence: None)
  Receive Date: 20070309
  Receipt Date: 20070227
  Transmission Date: 20070707
  Serious: Yes (Death)
  Sender: FDA-Public Use
  Company Number: BE-PFIZER INC-2007010072

PATIENT
  Age: 4 Year
  Sex: Female

DRUGS (16)
  1. DOXORUBICIN HYDROCHLORIDE [Suspect]
     Indication: NEUROBLASTOMA
  2. DOXORUBICIN HYDROCHLORIDE [Suspect]
  3. ETOPOSIDE [Suspect]
     Indication: NEUROBLASTOMA
  4. CISPLATIN [Suspect]
     Indication: NEUROBLASTOMA
  5. CISPLATIN [Suspect]
  6. VINCRISTINE SULFATE [Suspect]
     Indication: NEUROBLASTOMA
  7. VINCRISTINE SULFATE [Suspect]
  8. VINCRISTINE SULFATE [Suspect]
  9. CARBOPLATIN [Suspect]
     Indication: NEUROBLASTOMA
  10. CYCLOPHOSPHAMIDE [Suspect]
     Indication: NEUROBLASTOMA
  11. CYCLOPHOSPHAMIDE [Suspect]
  12. CYCLOPHOSPHAMIDE [Suspect]
  13. CHLORMETHINE HYDROCHLORIDE [Suspect]
     Indication: NEUROBLASTOMA
  14. DACARBAZINE [Suspect]
     Indication: NEUROBLASTOMA
  15. BUSULFAN [Suspect]
     Indication: NEUROBLASTOMA
  16. TRETINOIN [Suspect]
     Indication: NEUROBLASTOMA

REACTIONS (4)
  - ACUTE MYELOMONOCYTIC LEUKAEMIA [None]
  - FUNGAL INFECTION [None]
  - GENE MUTATION [None]
  - MALIGNANT NEOPLASM PROGRESSION [None]
